FAERS Safety Report 19263641 (Version 1)
Quarter: 2021Q2

REPORT INFORMATION
  Report Type: Spontaneous
  Country: US (occurrence: US)
  Receive Date: 20210517
  Receipt Date: 20210517
  Transmission Date: 20210717
  Serious: Yes (Other)
  Sender: FDA-Public Use
  Company Number: NVSC2021US106437

PATIENT
  Age: 58 Year
  Sex: Male

DRUGS (4)
  1. RANITIDINE. [Suspect]
     Active Substance: RANITIDINE
     Indication: ABDOMINAL DISCOMFORT
     Dosage: 150 MG, QD
     Route: 065
     Dates: start: 201201, end: 202003
  2. RANITIDINE. [Suspect]
     Active Substance: RANITIDINE
     Indication: IRRITABLE BOWEL SYNDROME
  3. RANITIDINE. [Suspect]
     Active Substance: RANITIDINE
     Indication: ABDOMINAL DISCOMFORT
     Dosage: 150 MG, QD
     Route: 065
     Dates: start: 201201, end: 202003
  4. RANITIDINE. [Suspect]
     Active Substance: RANITIDINE
     Indication: IRRITABLE BOWEL SYNDROME

REACTIONS (2)
  - Product use in unapproved indication [Unknown]
  - Prostate cancer stage II [Recovering/Resolving]

NARRATIVE: CASE EVENT DATE: 20170601
